FAERS Safety Report 7080554-X (Version None)
Quarter: 2010Q4

REPORT INFORMATION
  Report Type: 
  Country: None (occurrence: None)
  Receive Date: 20101025
  Receipt Date: 20101006
  Transmission Date: 20110411
  Serious: Yes (Life-Threatening, Hospitalization)
  Sender: FDA-Public Use
  Company Number: 2010P1001860

PATIENT
  Age: 46 Year
  Sex: Male

DRUGS (4)
  1. PHENYTOIN [Suspect]
     Indication: CONVULSION PROPHYLAXIS
     Dates: start: 20070918, end: 20071029
  2. DEXAMETHASONE [Concomitant]
  3. FENTANYL [Concomitant]
  4. HYDROMORPHONE HCL [Concomitant]

REACTIONS (2)
  - ERYTHEMA MULTIFORME [None]
  - STEVENS-JOHNSON SYNDROME [None]
